FAERS Safety Report 19087673 (Version 2)
Quarter: 2021Q2

REPORT INFORMATION
  Report Type: Report from Study
  Country: IE (occurrence: IE)
  Receive Date: 20210402
  Receipt Date: 20210524
  Transmission Date: 20210717
  Serious: Yes (Hospitalization)
  Sender: FDA-Public Use
  Company Number: IE-BAXTER-2021BAX004870

PATIENT
  Age: 57 Year
  Sex: Female

DRUGS (27)
  1. SYNTHAMIN [Suspect]
     Active Substance: AMINO ACIDS
     Indication: INTESTINAL OBSTRUCTION
     Route: 042
     Dates: start: 20210303, end: 20210306
  2. SODIUM GLYCEROPHOSPHATE [Suspect]
     Active Substance: SODIUM GLYCEROPHOSPHATE
     Indication: OVARIAN CANCER
     Route: 042
     Dates: start: 20210306
  3. BUSCOPAN [Concomitant]
     Active Substance: BUTYLSCOPOLAMINE BROMIDE
     Indication: PRODUCT USED FOR UNKNOWN INDICATION
     Route: 065
  4. GLUCOSE INTRAVENOUS INFUSION BP 50% W/V [Suspect]
     Active Substance: DEXTROSE
     Indication: OVARIAN CANCER
     Route: 042
     Dates: start: 20210306
  5. POTASSIUM CHLORIDE. [Suspect]
     Active Substance: POTASSIUM CHLORIDE
     Indication: INTESTINAL OBSTRUCTION
     Route: 042
     Dates: start: 20210303, end: 20210306
  6. MAGNESIUM SULPHATE [Suspect]
     Active Substance: MAGNESIUM SULFATE
     Indication: OVARIAN CANCER
     Route: 042
     Dates: start: 20210306
  7. WATER FOR INJECTION [Suspect]
     Active Substance: WATER
     Indication: INTESTINAL OBSTRUCTION
     Route: 042
     Dates: start: 20210303, end: 20210306
  8. SODIUM CHLORIDE 0.9% INTRAVENOUS INFUSION BP [Suspect]
     Active Substance: SODIUM CHLORIDE
     Indication: OVARIAN CANCER
  9. SODIUM CHLORIDE. [Suspect]
     Active Substance: SODIUM CHLORIDE
     Indication: INTESTINAL OBSTRUCTION
     Route: 042
     Dates: start: 20210303, end: 20210306
  10. CALCIUM CHLORIDE. [Suspect]
     Active Substance: CALCIUM CHLORIDE
     Indication: INTESTINAL OBSTRUCTION
     Dosage: 1 MMOL/ML
     Route: 042
     Dates: start: 20210303, end: 20210306
  11. WATER FOR TPN [Suspect]
     Active Substance: WATER
     Indication: INTESTINAL OBSTRUCTION
     Route: 042
     Dates: start: 20210303, end: 20210306
  12. WATER FOR TPN [Suspect]
     Active Substance: WATER
     Indication: OVARIAN CANCER
     Route: 042
     Dates: start: 20210306
  13. SODIUM CHLORIDE. [Suspect]
     Active Substance: SODIUM CHLORIDE
     Indication: OVARIAN CANCER
     Route: 042
     Dates: start: 20210306
  14. CLINOLEIC 20% (BAG) [Suspect]
     Active Substance: OLIVE OIL\SOYBEAN OIL
     Indication: INTESTINAL OBSTRUCTION
     Dosage: PICC
     Route: 042
     Dates: start: 20210303, end: 20210306
  15. SODIUM CHLORIDE 0.9% INTRAVENOUS INFUSION BP [Suspect]
     Active Substance: SODIUM CHLORIDE
     Indication: INTESTINAL OBSTRUCTION
     Dosage: PICC
     Route: 042
     Dates: start: 20210303
  16. POTASSIUM CHLORIDE. [Suspect]
     Active Substance: POTASSIUM CHLORIDE
     Indication: OVARIAN CANCER
     Route: 042
     Dates: start: 20210306
  17. CERNEVIT [Suspect]
     Active Substance: VITAMINS
     Indication: OVARIAN CANCER
     Route: 042
     Dates: start: 20210306
  18. WATER FOR INJECTION [Suspect]
     Active Substance: WATER
     Indication: OVARIAN CANCER
     Route: 042
     Dates: start: 20210306
  19. CLINOLEIC 20% (BAG) [Suspect]
     Active Substance: OLIVE OIL\SOYBEAN OIL
     Indication: OVARIAN CANCER
     Route: 042
     Dates: start: 20210306
  20. CERNEVIT [Suspect]
     Active Substance: VITAMINS
     Indication: INTESTINAL OBSTRUCTION
     Route: 042
     Dates: start: 20210303, end: 20210306
  21. SODIUM GLYCEROPHOSPHATE [Suspect]
     Active Substance: SODIUM GLYCEROPHOSPHATE
     Indication: INTESTINAL OBSTRUCTION
     Route: 042
     Dates: start: 20210303, end: 20210306
  22. MAGNESIUM SULPHATE [Suspect]
     Active Substance: MAGNESIUM SULFATE
     Indication: INTESTINAL OBSTRUCTION
     Route: 042
     Dates: start: 20210303, end: 20210306
  23. SYNTHAMIN [Suspect]
     Active Substance: AMINO ACIDS
     Indication: OVARIAN CANCER
     Route: 042
     Dates: start: 20210306
  24. GLUCOSE INTRAVENOUS INFUSION BP 50% W/V [Suspect]
     Active Substance: DEXTROSE
     Indication: INTESTINAL OBSTRUCTION
     Route: 042
     Dates: start: 20210303, end: 20210306
  25. NUTRYELT CONCENTRATE FOR SOLUTION FOR INFUSION [Suspect]
     Active Substance: IRON\MINERALS\POTASSIUM IOD\SODIUM FLUORIDE\SODIUM MOLYBDATE\SODIUM SELENITE\ZINC
     Indication: INTESTINAL OBSTRUCTION
     Route: 042
     Dates: start: 20210303, end: 20210306
  26. NUTRYELT CONCENTRATE FOR SOLUTION FOR INFUSION [Suspect]
     Active Substance: IRON\MINERALS\POTASSIUM IOD\SODIUM FLUORIDE\SODIUM MOLYBDATE\SODIUM SELENITE\ZINC
     Indication: OVARIAN CANCER
     Route: 042
     Dates: start: 20210306
  27. CALCIUM CHLORIDE. [Suspect]
     Active Substance: CALCIUM CHLORIDE
     Indication: OVARIAN CANCER
     Route: 042
     Dates: start: 20210306

REACTIONS (5)
  - General physical health deterioration [Not Recovered/Not Resolved]
  - Blood urea increased [Not Recovered/Not Resolved]
  - Flushing [Recovered/Resolved]
  - Vomiting [Not Recovered/Not Resolved]
  - Pyrexia [Recovered/Resolved]

NARRATIVE: CASE EVENT DATE: 20210306
